FAERS Safety Report 4350992-4 (Version None)
Quarter: 2004Q2

REPORT INFORMATION
  Report Type: 
  Country: None (occurrence: None)
  Receive Date: 20040427
  Receipt Date: 20040420
  Transmission Date: 20050107
  Serious: Yes (Other)
  Sender: FDA-Public Use
  Company Number: GBWYE557705FEB04

PATIENT
  Age: 39 Year
  Sex: Female

DRUGS (2)
  1. EFFEXOR [Suspect]
     Indication: DEPRESSION
     Dosage: 75 + 37 MG 2X PER 1 DAY ORAL
     Route: 048
     Dates: start: 20021215, end: 20040101
  2. EFFEXOR [Suspect]
     Indication: DEPRESSION
     Dosage: 75 + 37 MG 2X PER 1 DAY ORAL
     Route: 048
     Dates: start: 20040101

REACTIONS (4)
  - FATIGUE [None]
  - FEELING ABNORMAL [None]
  - NEUROLEPTIC MALIGNANT SYNDROME [None]
  - NIGHT SWEATS [None]
